FAERS Safety Report 7344758-0 (Version None)
Quarter: 2011Q1

REPORT INFORMATION
  Report Type: 
  Country: None (occurrence: None)
  Receive Date: 20110310
  Receipt Date: 20110301
  Transmission Date: 20110831
  Serious: Yes (Other)
  Sender: FDA-Public Use
  Company Number: CA-JNJFOC-20100700992

PATIENT
  Sex: Male
  Weight: 111 kg

DRUGS (8)
  1. TYLENOL [Concomitant]
  2. BENADRYL [Concomitant]
     Indication: PREMEDICATION
     Dosage: 2ND INFUSION
  3. REMICADE [Suspect]
     Indication: PRODUCT USED FOR UNKNOWN INDICATION
     Route: 042
  4. CITALOPRAM [Concomitant]
  5. BENZTROPINE MESYLATE [Concomitant]
  6. QUETIAPINE FUMARATE [Concomitant]
  7. CLONAZEPAM [Concomitant]
  8. CIPRO [Concomitant]

REACTIONS (4)
  - RESPIRATORY DISORDER [None]
  - ANXIETY [None]
  - HYPOAESTHESIA [None]
  - MALAISE [None]
